FAERS Safety Report 7960221-8 (Version None)
Quarter: 2011Q4

REPORT INFORMATION
  Report Type: 
  Country: None (occurrence: None)
  Receive Date: 20111206
  Receipt Date: 20111202
  Transmission Date: 20120403
  Serious: No
  Sender: FDA-Public Use
  Company Number: US-PFIZER INC-2011295011

PATIENT
  Sex: Female
  Weight: 74.83 kg

DRUGS (5)
  1. LIPITOR [Concomitant]
     Dosage: UNK
  2. EFFEXOR XR [Suspect]
     Dosage: 150 MG
     Route: 048
  3. EFFEXOR XR [Suspect]
     Dosage: UNK
     Route: 048
     Dates: end: 20110501
  4. EFFEXOR XR [Suspect]
     Indication: DEPRESSION
     Dosage: 37.5 MG, 1X/DAY
     Route: 048
     Dates: start: 19990601
  5. EFFEXOR XR [Suspect]
     Dosage: 75 MG
     Route: 048

REACTIONS (2)
  - WEIGHT LOSS POOR [None]
  - WEIGHT INCREASED [None]
